FAERS Safety Report 6885307-0 (Version None)
Quarter: 2010Q3

REPORT INFORMATION
  Report Type: 
  Country: None (occurrence: None)
  Receive Date: 20100729
  Receipt Date: 20100729
  Transmission Date: 20110219
  Serious: Yes (Hospitalization)
  Sender: FDA-Public Use
  Company Number: None

PATIENT
  Sex: Female
  Weight: 51.7101 kg

DRUGS (7)
  1. BIAXIN [Suspect]
     Indication: SINUSITIS
     Dosage: 500MG TWICE A DAY ORAL END OF MARCH 2010
     Route: 048
  2. CLARITHROMYCIN [Suspect]
     Indication: SINUSITIS
     Dosage: 500 MG TWICE A DAY ORAL ABOUT 1 WK AND 1/2, BEGINNING OF APRIL
     Route: 048
  3. CRESTOR [Concomitant]
  4. CYMBALTA [Concomitant]
  5. LISINOPRIL [Concomitant]
  6. YAZ [Concomitant]
  7. NASONEX [Concomitant]

REACTIONS (4)
  - APPARENT DEATH [None]
  - MANIA [None]
  - PALPITATIONS [None]
  - PERSONALITY CHANGE [None]
